FAERS Safety Report 9793839 (Version 1)
Quarter: 2014Q1

REPORT INFORMATION
  Report Type: Spontaneous
  Country: US (occurrence: US)
  Receive Date: 20140102
  Receipt Date: 20140102
  Transmission Date: 20141002
  Serious: No
  Sender: FDA-Public Use
  Company Number: US-AMGEN-USASP2013087400

PATIENT
  Age: 15 Year
  Sex: Female

DRUGS (1)
  1. ENBREL [Suspect]
     Indication: RHEUMATOID ARTHRITIS
     Dosage: 25 MG, QWK
     Route: 065
     Dates: start: 20130930

REACTIONS (3)
  - Abdominal pain upper [Recovered/Resolved]
  - Gastrointestinal disorder [Recovered/Resolved]
  - Diarrhoea [Recovered/Resolved]
